FAERS Safety Report 6761941-3 (Version None)
Quarter: 2010Q2

REPORT INFORMATION
  Report Type: 
  Country: None (occurrence: None)
  Receive Date: 20100609
  Receipt Date: 20091020
  Transmission Date: 20101027
  Serious: No
  Sender: FDA-Public Use
  Company Number: US-KINGPHARMUSA00001-K200901296

PATIENT
  Age: 96 Year
  Sex: Female

DRUGS (1)
  1. CORTISPORIN [Suspect]
     Indication: EYE INFECTION
     Dosage: 2 GTT, BID
     Route: 031
     Dates: start: 20091019, end: 20091019

REACTIONS (2)
  - DRUG ADMINISTERED AT INAPPROPRIATE SITE [None]
  - DRUG DISPENSING ERROR [None]
